FAERS Safety Report 10005987 (Version 4)
Quarter: 2015Q3

REPORT INFORMATION
  Report Type: Spontaneous
  Country: US (occurrence: US)
  Receive Date: 20140313
  Receipt Date: 20150915
  Transmission Date: 20151125
  Serious: Yes (Other)
  Sender: FDA-Public Use
  Company Number: US-JNJFOC-20140305826

PATIENT
  Sex: Male

DRUGS (2)
  1. IBUPROFEN. [Suspect]
     Active Substance: IBUPROFEN
     Indication: PAIN
     Route: 048
  2. IBUPROFEN. [Suspect]
     Active Substance: IBUPROFEN
     Indication: PAIN
     Route: 048
     Dates: start: 201402, end: 201402

REACTIONS (15)
  - Tinnitus [Unknown]
  - Feeling abnormal [Unknown]
  - Dizziness [Unknown]
  - Hearing impaired [Unknown]
  - Deafness [Unknown]
  - Body temperature decreased [Unknown]
  - Restlessness [Unknown]
  - Abdominal distension [Unknown]
  - Quality of life decreased [Unknown]
  - Eating disorder [Unknown]
  - Insomnia [Unknown]
  - Visual acuity reduced [Unknown]
  - Asthenia [Unknown]
  - Gastric ulcer [Recovering/Resolving]
  - Ear discomfort [Unknown]

NARRATIVE: CASE EVENT DATE: 201402
